FAERS Safety Report 10264644 (Version 1)
Quarter: 2014Q2

REPORT INFORMATION
  Report Type: Spontaneous
  Country: US (occurrence: None)
  Receive Date: 20140625
  Receipt Date: 20140625
  Transmission Date: 20141212
  Serious: No
  Sender: FDA-Public Use
  Company Number: None

PATIENT
  Age: 74 Year
  Sex: Female
  Weight: 64.41 kg

DRUGS (1)
  1. PREDNISOLONE [Suspect]
     Route: 047
     Dates: start: 20140509, end: 20140510

REACTIONS (2)
  - Nausea [None]
  - Throat tightness [None]
